FAERS Safety Report 17395672 (Version 1)
Quarter: 2020Q1

REPORT INFORMATION
  Report Type: Spontaneous
  Country: HR (occurrence: HR)
  Receive Date: 20200210
  Receipt Date: 20200210
  Transmission Date: 20200409
  Serious: Yes (Other)
  Sender: FDA-Public Use
  Company Number: NVSC2020HR031158

PATIENT
  Age: 32 Year
  Sex: Male

DRUGS (1)
  1. GILENYA [Suspect]
     Active Substance: FINGOLIMOD HYDROCHLORIDE
     Indication: MULTIPLE SCLEROSIS
     Dosage: 0.5 MG, QD
     Route: 048
     Dates: start: 20140327, end: 20191021

REACTIONS (3)
  - Psychotic symptom [Recovering/Resolving]
  - Depression [Recovering/Resolving]
  - Affective disorder [Recovering/Resolving]

NARRATIVE: CASE EVENT DATE: 20191001
